FAERS Safety Report 11862844 (Version 1)
Quarter: 2015Q4

REPORT INFORMATION
  Report Type: Other
  Country: US (occurrence: US)
  Receive Date: 20151223
  Receipt Date: 20151223
  Transmission Date: 20160305
  Serious: Yes (Other)
  Sender: FDA-Public Use
  Company Number: US-CIPLA-2015US07749

PATIENT

DRUGS (4)
  1. QUETIAPINE [Concomitant]
     Active Substance: QUETIAPINE
     Dosage: 25 MG, IN THE EVENING
  2. QUETIAPINE [Concomitant]
     Active Substance: QUETIAPINE
     Dosage: 12.5 MG, IN THE MORNING
  3. LAMOTRIGINE. [Suspect]
     Active Substance: LAMOTRIGINE
     Dosage: 200 MG, UNK
     Route: 048
     Dates: start: 20150824, end: 20150908
  4. LAMOTRIGINE. [Suspect]
     Active Substance: LAMOTRIGINE
     Indication: SEIZURE
     Dosage: 25 MG, UNK
     Route: 048
     Dates: start: 20150824, end: 20150908

REACTIONS (1)
  - Seizure [Unknown]
